FAERS Safety Report 10755767 (Version 2)
Quarter: 2015Q2

REPORT INFORMATION
  Report Type: Spontaneous
  Country: US (occurrence: US)
  Receive Date: 20150202
  Receipt Date: 20150626
  Transmission Date: 20150821
  Serious: No
  Sender: FDA-Public Use
  Company Number: US-009507513-1501USA010241

PATIENT
  Age: 14 Year
  Sex: Female
  Weight: 91.8 kg

DRUGS (3)
  1. DULERA [Interacting]
     Active Substance: FORMOTEROL FUMARATE DIHYDRATE\MOMETASONE FUROATE
     Indication: VIRAL INFECTION
  2. DULERA [Suspect]
     Active Substance: FORMOTEROL FUMARATE DIHYDRATE\MOMETASONE FUROATE
     Indication: ASTHMA
     Dosage: ONE PUFF TWO TIMES DAILY
     Route: 055
     Dates: start: 20150109, end: 20150113
  3. PROVENTIL [Interacting]
     Active Substance: ALBUTEROL
     Dosage: UNK

REACTIONS (5)
  - Feeling abnormal [Recovering/Resolving]
  - Obstructive airways disorder [Recovering/Resolving]
  - Palpitations [Recovering/Resolving]
  - Drug ineffective [Recovering/Resolving]
  - Cough [Recovered/Resolved]

NARRATIVE: CASE EVENT DATE: 201501
